FAERS Safety Report 6254013-8 (Version None)
Quarter: 2009Q3

REPORT INFORMATION
  Report Type: 
  Country: None (occurrence: None)
  Receive Date: 20090702
  Receipt Date: 20090624
  Transmission Date: 20100115
  Serious: Yes (Other)
  Sender: FDA-Public Use
  Company Number: US-ROCHE-636913

PATIENT
  Sex: Female

DRUGS (8)
  1. BONIVA [Suspect]
     Indication: OSTEOPOROSIS
     Route: 048
  2. FORTEO [Suspect]
     Indication: OSTEOPOROSIS
     Dosage: PRE-FILLED DISPOSABLE PEN
     Route: 065
     Dates: start: 20050101, end: 20070101
  3. FORTEO [Suspect]
     Dosage: LOT NUMBER: A551498C
     Route: 065
     Dates: start: 20090507
  4. NEXIUM [Concomitant]
  5. ADVAIR HFA [Concomitant]
     Indication: ASTHMA
  6. FLONASE [Concomitant]
  7. FORTEO [Concomitant]
     Dosage: DISPOSABLE PEN, DOSE: 250 MCG/ML; DRUG: FORTEO (COLTER) PEN
  8. FISH OIL [Concomitant]

REACTIONS (5)
  - AVERSION [None]
  - BONE DISORDER [None]
  - INTENTIONAL DRUG MISUSE [None]
  - MEDICATION ERROR [None]
  - STRESS FRACTURE [None]
